FAERS Safety Report 7824142-3 (Version None)
Quarter: 2011Q4

REPORT INFORMATION
  Report Type: 
  Country: None (occurrence: None)
  Receive Date: 20111019
  Receipt Date: 20111008
  Transmission Date: 20120403
  Serious: Yes (Other)
  Sender: FDA-Public Use
  Company Number: PHEH2011US02927

PATIENT
  Sex: Male

DRUGS (10)
  1. LISINOPRIL [Concomitant]
  2. NIFEDIPINE [Concomitant]
  3. MYFORTIC [Suspect]
     Indication: RENAL TRANSPLANT
     Dosage: 360 MG, BID
     Route: 048
     Dates: start: 20100806
  4. GLIPIZIDE [Concomitant]
  5. MULTIVITAMIN [Concomitant]
  6. CALCITRIOL [Concomitant]
  7. ASCORBIC ACID [Concomitant]
  8. PROGRAF [Suspect]
     Dosage: 1 MG, BID
     Route: 048
     Dates: start: 20080908
  9. ALLOPURINOL [Concomitant]
  10. SIMVASTATIN [Concomitant]

REACTIONS (6)
  - ABDOMINAL DISCOMFORT [None]
  - MALAISE [None]
  - CHILLS [None]
  - DRUG INEFFECTIVE [None]
  - FATIGUE [None]
  - PARANOIA [None]
